FAERS Safety Report 7407358-X (Version None)
Quarter: 2011Q2

REPORT INFORMATION
  Report Type: 
  Country: None (occurrence: None)
  Receive Date: 20110411
  Receipt Date: 20110406
  Transmission Date: 20111010
  Serious: Yes (Death, Hospitalization, Other)
  Sender: FDA-Public Use
  Company Number: US-US-EMD SERONO, INC.-7052523

PATIENT
  Sex: Female

DRUGS (3)
  1. REBIF [Suspect]
     Indication: MULTIPLE SCLEROSIS
     Route: 058
     Dates: start: 20070101, end: 20110301
  2. WELLBUTRIN [Concomitant]
  3. NORTRIPTYLINE HCL [Concomitant]

REACTIONS (11)
  - DRUG INTERACTION [None]
  - CARDIAC ARREST [None]
  - INTRACARDIAC THROMBUS [None]
  - LIVER DISORDER [None]
  - MULTIPLE SCLEROSIS RELAPSE [None]
  - CARDIAC VALVE DISEASE [None]
  - URINARY TRACT INFECTION [None]
  - PYREXIA [None]
  - BRONCHITIS [None]
  - UPPER RESPIRATORY TRACT INFECTION [None]
  - CARDIOMEGALY [None]
